FAERS Safety Report 10237376 (Version 2)
Quarter: 2014Q2

REPORT INFORMATION
  Report Type: Report from Study
  Country: NL (occurrence: NL)
  Receive Date: 20140614
  Receipt Date: 20140614
  Transmission Date: 20141212
  Serious: Yes (Death, Hospitalization)
  Sender: FDA-Public Use
  Company Number: NL-ABBVIE-14P-114-1207238-00

PATIENT
  Age: 1 Year
  Sex: Male
  Weight: 9.43 kg

DRUGS (7)
  1. SYNAGIS [Suspect]
     Indication: HEART DISEASE CONGENITAL
     Dosage: BODY WEIGHT
     Route: 030
     Dates: start: 20131204, end: 20131204
  2. SYNAGIS [Suspect]
     Dosage: BODY WEIGHT
     Route: 030
     Dates: start: 20140101, end: 20140101
  3. SYNAGIS [Suspect]
     Dosage: BODY WEIGHT
     Route: 030
     Dates: start: 20140129, end: 20140129
  4. METOPROLOL [Concomitant]
     Indication: PRODUCT USED FOR UNKNOWN INDICATION
     Route: 048
  5. RIBOFLAVINE [Concomitant]
     Indication: PRODUCT USED FOR UNKNOWN INDICATION
     Route: 048
  6. RIVOTRIL [Concomitant]
     Indication: PRODUCT USED FOR UNKNOWN INDICATION
     Route: 048
  7. LEVOCARNITINE [Concomitant]
     Indication: PRODUCT USED FOR UNKNOWN INDICATION
     Route: 048

REACTIONS (2)
  - Death [Fatal]
  - Ileus [Not Recovered/Not Resolved]
